FAERS Safety Report 5868767-3 (Version None)
Quarter: 2008Q3

REPORT INFORMATION
  Report Type: 
  Country: None (occurrence: None)
  Receive Date: 20080903
  Receipt Date: 20080826
  Transmission Date: 20090109
  Serious: Yes (Other)
  Sender: FDA-Public Use
  Company Number: US-ASTRAZENECA-2008UW17592

PATIENT
  Age: 60 Year
  Sex: Female
  Weight: 53.5 kg

DRUGS (9)
  1. ZOMIG [Suspect]
     Indication: MIGRAINE
     Route: 048
     Dates: start: 20080301
  2. ZOMIG [Suspect]
     Route: 048
     Dates: start: 20080811
  3. ALPRAZOLAM [Concomitant]
  4. VICODIN [Concomitant]
  5. BUSPIRONE HCL [Concomitant]
  6. PANTOPRAZOLE SODIUM [Concomitant]
  7. AVANDAMET [Concomitant]
  8. ELAVIL [Concomitant]
     Dates: end: 20080501
  9. NEURONTIN [Concomitant]
     Dates: end: 20080701

REACTIONS (2)
  - COELIAC DISEASE [None]
  - MIGRAINE [None]
